FAERS Safety Report 19661371 (Version 1)
Quarter: 2021Q3

REPORT INFORMATION
  Report Type: Spontaneous
  Country: US (occurrence: US)
  Receive Date: 20210805
  Receipt Date: 20210805
  Transmission Date: 20211014
  Serious: No
  Sender: FDA-Public Use
  Company Number: US-PFIZER INC-202100941996

PATIENT
  Age: 62 Year
  Sex: Female
  Weight: 104.31 kg

DRUGS (1)
  1. IBRANCE [Suspect]
     Active Substance: PALBOCICLIB
     Indication: BREAST CANCER FEMALE
     Dosage: 125 MG, CYCLIC(1 DAILY FOR 21 DAYS)
     Dates: start: 20210623

REACTIONS (4)
  - Malaise [Unknown]
  - Cough [Unknown]
  - Blood count abnormal [Unknown]
  - Rhinorrhoea [Unknown]
